FAERS Safety Report 8131990-1 (Version None)
Quarter: 2012Q1

REPORT INFORMATION
  Report Type: 
  Country: None (occurrence: None)
  Receive Date: 20120213
  Receipt Date: 20120206
  Transmission Date: 20120608
  Serious: Yes (Hospitalization)
  Sender: FDA-Public Use
  Company Number: IL-BAYER-2012-001189

PATIENT
  Sex: Female

DRUGS (1)
  1. MIRENA [Suspect]
     Dosage: 20 MCG/24HR, UNK
     Route: 015
     Dates: start: 20110901, end: 20120101

REACTIONS (8)
  - DEPRESSION SUICIDAL [None]
  - PRESYNCOPE [None]
  - DYSPNOEA [None]
  - ANXIETY [None]
  - RESTLESSNESS [None]
  - DEPRESSION [None]
  - NERVOUSNESS [None]
  - ASTHENIA [None]
